FAERS Safety Report 8075432-3 (Version None)
Quarter: 2012Q1

REPORT INFORMATION
  Report Type: 
  Country: None (occurrence: None)
  Receive Date: 20120127
  Receipt Date: 20120125
  Transmission Date: 20120608
  Serious: Yes (Other)
  Sender: FDA-Public Use
  Company Number: BE-AMGEN-BELSP2011035470

PATIENT
  Age: 76 Year
  Sex: Male

DRUGS (2)
  1. METHYLPREDNISOLONE [Suspect]
     Indication: PLATELET COUNT INCREASED
     Dosage: 31 MG, QD
     Dates: start: 20110628, end: 20110630
  2. NPLATE [Suspect]
     Indication: PRODUCT USED FOR UNKNOWN INDICATION
     Dosage: 32 MG, QWK
     Route: 058
     Dates: start: 20101001, end: 20110706

REACTIONS (2)
  - THROMBOSIS [None]
  - DRUG INEFFECTIVE [None]
